FAERS Safety Report 21212051 (Version 3)
Quarter: 2023Q2

REPORT INFORMATION
  Report Type: Spontaneous
  Country: IT (occurrence: IT)
  Receive Date: 20220815
  Receipt Date: 20230607
  Transmission Date: 20230721
  Serious: Yes (Hospitalization, Other)
  Sender: FDA-Public Use
  Company Number: None

PATIENT
  Age: 20 Year
  Sex: Female
  Weight: 90 kg

DRUGS (9)
  1. TALOFEN [Suspect]
     Active Substance: PROMAZINE HYDROCHLORIDE
     Indication: Personality disorder
     Dosage: 180 MILLIGRAM (TOTAL 180 MG)
     Route: 048
     Dates: start: 2016, end: 20220524
  2. TALOFEN [Suspect]
     Active Substance: PROMAZINE HYDROCHLORIDE
     Dosage: UNK, GTT 30 ML 4%- 2 VIALS
     Route: 065
  3. OLANZAPINE [Suspect]
     Active Substance: OLANZAPINE
     Indication: Personality disorder
     Dosage: 30 MILLIGRAM (30 MG TOTAL)
     Route: 048
     Dates: start: 2016, end: 20220524
  4. DELORAZEPAM [Suspect]
     Active Substance: DELORAZEPAM
     Indication: Personality disorder
     Dosage: 3 MILLIGRAM (TOTAL 3 MG)
     Route: 048
     Dates: start: 2016, end: 20220524
  5. DELORAZEPAM [Suspect]
     Active Substance: DELORAZEPAM
     Dosage: UNK
     Route: 065
  6. RIVOTRIL [Suspect]
     Active Substance: CLONAZEPAM
     Indication: Personality disorder
     Dosage: 40 MILLIGRAM  (40 MG TOTAL)
     Route: 048
     Dates: start: 2016, end: 20220524
  7. RIVOTRIL [Suspect]
     Active Substance: CLONAZEPAM
     Dosage: UNK, GTT 10 ML 0,25- 3 VIALS
     Route: 065
  8. RISPERDAL [Suspect]
     Active Substance: RISPERIDONE
     Indication: Product used for unknown indication
     Dosage: UNK
     Route: 048
  9. LAMICTAL [Suspect]
     Active Substance: LAMOTRIGINE
     Indication: Product used for unknown indication
     Dosage: UNK, 28 TABLETS
     Route: 065

REACTIONS (6)
  - Intentional self-injury [Recovered/Resolved]
  - Suicide attempt [Unknown]
  - Hypertension [Unknown]
  - Sluggishness [Unknown]
  - Intentional overdose [Recovered/Resolved]
  - Drug abuse [Unknown]

NARRATIVE: CASE EVENT DATE: 20220524
